FAERS Safety Report 5558695-5 (Version None)
Quarter: 2007Q4

REPORT INFORMATION
  Report Type: 
  Country: None (occurrence: None)
  Receive Date: 20071214
  Receipt Date: 20071206
  Transmission Date: 20080405
  Serious: Yes (Death, Hospitalization, Other)
  Sender: FDA-Public Use
  Company Number: BR-ABBOTT-07P-020-0424464-00

PATIENT
  Age: 67 Year
  Sex: Female
  Weight: 70 kg

DRUGS (5)
  1. HUMIRA [Suspect]
     Indication: RHEUMATOID ARTHRITIS
     Route: 058
     Dates: start: 20060901
  2. UNKNOWN [Concomitant]
     Indication: ARRHYTHMIA
     Route: 048
  3. UNKNOWN [Concomitant]
     Indication: HYPERTENSION
     Route: 048
  4. UNKNOWN [Concomitant]
     Indication: OSTEOPOROSIS
     Route: 048
  5. MAGISTRAL FORMULA [Concomitant]
     Indication: RHEUMATOID ARTHRITIS
     Route: 048

REACTIONS (2)
  - ACUTE MYOCARDIAL INFARCTION [None]
  - COMA [None]
